FAERS Safety Report 7475553-X (Version None)
Quarter: 2011Q2

REPORT INFORMATION
  Report Type: 
  Country: None (occurrence: None)
  Receive Date: 20110512
  Receipt Date: 20110502
  Transmission Date: 20111010
  Serious: Yes (Hospitalization)
  Sender: FDA-Public Use
  Company Number: PHHY2011MX38010

PATIENT
  Sex: Male

DRUGS (3)
  1. DIOVAN [Concomitant]
     Dosage: 80 MG, DAILY
  2. GLINORBORAL [Concomitant]
  3. STALEVO 100 [Suspect]
     Indication: PARKINSON'S DISEASE
     Dosage: 3 TABLET (200/50/12.45 MG) DAILY

REACTIONS (1)
  - BLOOD GLUCOSE DECREASED [None]
